FAERS Safety Report 16877869 (Version 4)
Quarter: 2019Q4

REPORT INFORMATION
  Report Type: Spontaneous
  Country: JP (occurrence: JP)
  Receive Date: 20191002
  Receipt Date: 20191030
  Transmission Date: 20200122
  Serious: Yes (Hospitalization, Other)
  Sender: FDA-Public Use
  Company Number: JP-009507513-1910JPN002113

PATIENT
  Age: 71 Year
  Sex: Male
  Weight: 80 kg

DRUGS (17)
  1. PARIET [Suspect]
     Active Substance: RABEPRAZOLE SODIUM
     Indication: PROPHYLAXIS AGAINST GASTROINTESTINAL ULCER
     Dosage: 10 MG, EVERYDAY
     Route: 048
     Dates: start: 20130504, end: 20130722
  2. METHYCOBAL [Concomitant]
     Active Substance: METHYLCOBALAMIN
     Dosage: UNK
     Dates: start: 20100212
  3. GLACTIV [Suspect]
     Active Substance: SITAGLIPTIN
     Indication: DIABETES MELLITUS
     Dosage: 50 MG, EVERY DAY
     Route: 048
     Dates: start: 20120330, end: 20130722
  4. LYRICA [Suspect]
     Active Substance: PREGABALIN
     Indication: NEURALGIA
     Dosage: 150 MG, Q12H
     Route: 048
     Dates: start: 20120329
  5. ACTOS [Suspect]
     Active Substance: PIOGLITAZONE HYDROCHLORIDE
     Indication: DIABETES MELLITUS
     Dosage: 15 MG, EVERYDAY
     Route: 048
     Dates: start: 20120330, end: 20130722
  6. AMARYL [Suspect]
     Active Substance: GLIMEPIRIDE
     Indication: DIABETES MELLITUS
     Dosage: 2 MG, EVERYDAY
     Route: 048
     Dates: start: 20120330, end: 20130722
  7. NORVASC [Concomitant]
     Active Substance: AMLODIPINE BESYLATE
     Dosage: UNK
     Dates: start: 20120330
  8. MEDET [Suspect]
     Active Substance: METFORMIN HYDROCHLORIDE
     Indication: DIABETES MELLITUS
     Dosage: 250 MILLIGRAM, Q8H
     Route: 048
     Dates: start: 20120329, end: 20130722
  9. ROZEREM [Concomitant]
     Active Substance: RAMELTEON
     Dosage: UNK
     Dates: start: 20130428
  10. INSULIN [Concomitant]
     Active Substance: INSULIN NOS
     Dosage: UNK
     Dates: start: 20130722
  11. LYRICA [Suspect]
     Active Substance: PREGABALIN
     Dosage: 25 MG, EVERYDAY
     Route: 048
     Dates: start: 20130329, end: 20130722
  12. CRESTOR [Suspect]
     Active Substance: ROSUVASTATIN CALCIUM
     Indication: HYPERLIPIDAEMIA
     Dosage: 2.5 MG, EVERYDAY
     Route: 048
     Dates: start: 20120330, end: 20130722
  13. PURSENNID (SENNOSIDES) [Concomitant]
     Active Substance: SENNOSIDES A AND B
     Dosage: UNK
     Dates: start: 20120330
  14. ATORVASTATIN CALCIUM. [Suspect]
     Active Substance: ATORVASTATIN CALCIUM
     Dosage: UNK
     Route: 065
  15. NATRIX [Concomitant]
     Active Substance: INDAPAMIDE
     Dosage: UNK
     Dates: start: 20120330
  16. BAYASPIRIN [Concomitant]
     Active Substance: ASPIRIN
     Dosage: UNK
     Dates: start: 20120330
  17. GOODMIN [Concomitant]
     Active Substance: BROTIZOLAM
     Dosage: UNK
     Dates: start: 20120330

REACTIONS (9)
  - Blood potassium decreased [Recovered/Resolved]
  - Viral infection [Recovered/Resolved]
  - Gastrooesophageal reflux disease [Unknown]
  - Rhabdomyolysis [Recovered/Resolved]
  - Dehydration [Recovered/Resolved]
  - Gastric ulcer [Unknown]
  - Gastroenteritis [Unknown]
  - Enterocolitis [Recovered/Resolved]
  - Diarrhoea [Unknown]

NARRATIVE: CASE EVENT DATE: 20130504
